FAERS Safety Report 17103122 (Version 4)
Quarter: 2025Q1

REPORT INFORMATION
  Report Type: Report from Study
  Country: US (occurrence: US)
  Receive Date: 20191203
  Receipt Date: 20250129
  Transmission Date: 20250408
  Serious: Yes (Hospitalization, Other)
  Sender: ROCHE
  Company Number: US-ROCHE-2482250

PATIENT
  Sex: Male

DRUGS (5)
  1. OCREVUS [Suspect]
     Active Substance: OCRELIZUMAB
     Indication: Relapsing multiple sclerosis
     Dosage: DATE OF TREATMENT: 07/SEP/2017,  21/SEP/2017, 08/MAR/2018, 10/SEP/2018,  27/MAR/2019, 20/SEP/2019, 2
     Route: 065
     Dates: start: 20170824
  2. OCREVUS [Suspect]
     Active Substance: OCRELIZUMAB
     Indication: Primary progressive multiple sclerosis
  3. RITUXAN [Suspect]
     Active Substance: RITUXIMAB
     Indication: Relapsing multiple sclerosis
     Route: 065
     Dates: start: 2015
  4. RITUXAN [Suspect]
     Active Substance: RITUXIMAB
     Indication: Primary progressive multiple sclerosis
  5. SOLU-MEDROL [Concomitant]
     Active Substance: METHYLPREDNISOLONE SODIUM SUCCINATE
     Dates: start: 20170809

REACTIONS (13)
  - Encephalopathy [Unknown]
  - Infection [Unknown]
  - Cardiac failure congestive [Unknown]
  - Sepsis [Unknown]
  - Oedema [Unknown]
  - Cellulitis [Unknown]
  - Pain [Unknown]
  - Off label use [Unknown]
  - Skin ulcer [Unknown]
  - Blister [Unknown]
  - Immunoglobulins abnormal [Unknown]
  - Blood bilirubin increased [Unknown]
  - Panic reaction [Unknown]
